FAERS Safety Report 6071794-7 (Version None)
Quarter: 2009Q1

REPORT INFORMATION
  Report Type: 
  Country: None (occurrence: None)
  Receive Date: 20090210
  Receipt Date: 20090130
  Transmission Date: 20090719
  Serious: Yes (Hospitalization)
  Sender: FDA-Public Use
  Company Number: PHHY2009DE03600

PATIENT
  Sex: Male

DRUGS (1)
  1. ACLASTA [Suspect]
     Dosage: 5 MG/100 ML
     Route: 042
     Dates: start: 20081111

REACTIONS (12)
  - ABDOMINAL PAIN UPPER [None]
  - BACK PAIN [None]
  - CHOLECYSTITIS [None]
  - COLECTOMY [None]
  - COLON NEOPLASM [None]
  - GASTRITIS [None]
  - GENERAL PHYSICAL HEALTH DETERIORATION [None]
  - LARGE INTESTINE ANASTOMOSIS [None]
  - LARGE INTESTINE PERFORATION [None]
  - PANCREATITIS [None]
  - REFLUX OESOPHAGITIS [None]
  - TUMOUR EXCISION [None]
